FAERS Safety Report 6516296-6 (Version None)
Quarter: 2009Q4

REPORT INFORMATION
  Report Type: 
  Country: None (occurrence: None)
  Receive Date: 20091223
  Receipt Date: 20090507
  Transmission Date: 20100525
  Serious: Yes (Death, Hospitalization)
  Sender: FDA-Public Use
  Company Number: FR-ROCHE-633148

PATIENT
  Sex: Female

DRUGS (12)
  1. METHOXY POLYETHYLENE GLYCOL-EPOETIN BETA [Suspect]
     Dosage: LAST DOSE PRIOR TO SAE ON 09 APR 2009; FORM: PRE-FILLED SYRINGE
     Route: 058
     Dates: start: 20090213
  2. FUCIDINE CAP [Concomitant]
     Dates: start: 20090430, end: 20090506
  3. PREVISCAN [Concomitant]
     Dosage: TDD: 3/4 CP/J
  4. APIDRA [Concomitant]
  5. LEVOTHYROXINE SODIUM [Concomitant]
     Dosage: TDD: 175 UG/J
  6. LASILIX [Concomitant]
     Dosage: 1 PER DAY; DOSE ILLEGIBLE
     Dates: end: 20090507
  7. CACIT [Concomitant]
     Dosage: DRUG: CACIT 1000; TDD: 2 CP/J
     Dates: end: 20090506
  8. DEDROGYL [Concomitant]
     Dosage: DOSE: 15 DROPS; TDD: 15 GTTES/SCM
     Dates: start: 20081201, end: 20090506
  9. KARDEGIC [Concomitant]
     Dates: end: 20090506
  10. LANTUS [Concomitant]
  11. TAHOR [Concomitant]
     Dosage: DRUG: TAHOR 40
     Dates: end: 20090506
  12. FORLAX [Concomitant]
     Dosage: FORM: SACHET; 1 SACHET PER DAY
     Dates: end: 20090506

REACTIONS (1)
  - SEPSIS [None]
